FAERS Safety Report 7674129-9 (Version None)
Quarter: 2011Q3

REPORT INFORMATION
  Report Type: 
  Country: None (occurrence: None)
  Receive Date: 20110810
  Receipt Date: 20110727
  Transmission Date: 20111222
  Serious: Yes (Hospitalization)
  Sender: FDA-Public Use
  Company Number: US-ELI_LILLY_AND_COMPANY-US201011006451

PATIENT
  Sex: Male

DRUGS (13)
  1. NEURONTIN [Concomitant]
     Dosage: UNK, DAILY (1/D)
     Route: 065
  2. FORTEO [Suspect]
     Dosage: 20 UG, QD
     Route: 065
  3. LISINOPRIL [Concomitant]
     Dosage: UNK, DAILY (1/D)
     Route: 065
  4. METOPROLOL TARTRATE [Concomitant]
     Dosage: UNK, DAILY (1/D)
     Route: 065
  5. NEXIUM [Concomitant]
     Dosage: UNK, DAILY (1/D)
     Route: 065
  6. OXYCODONE HCL [Concomitant]
     Dosage: 5 MG, DAILY (1/D)
     Route: 065
  7. LIPITOR [Concomitant]
     Dosage: UNK, DAILY (1/D)
     Route: 065
  8. METHOTREXATE [Concomitant]
     Dosage: UNK, WEEKLY (1/W)
     Route: 065
  9. PREDNISONE [Concomitant]
     Dosage: UNK, DAILY (1/D)
     Route: 065
  10. HYDROXYCHLOROQUINE [Concomitant]
     Dosage: UNK, DAILY (1/D)
     Route: 065
  11. FORTEO [Suspect]
     Indication: OSTEOPOROSIS
     Dosage: 20 UG, DAILY (1/D)
     Route: 065
  12. FOLIC ACID [Concomitant]
     Dosage: UNK, DAILY (1/D)
     Route: 065
  13. OXYCONTIN [Concomitant]
     Dosage: 20 MG, DAILY (1/D)
     Route: 065

REACTIONS (6)
  - WEIGHT DECREASED [None]
  - SYNCOPE [None]
  - RENAL DISORDER [None]
  - BLOOD CALCIUM INCREASED [None]
  - PNEUMONIA PRIMARY ATYPICAL [None]
  - DEHYDRATION [None]
